FAERS Safety Report 8502033-2 (Version None)
Quarter: 2012Q3

REPORT INFORMATION
  Report Type: 
  Country: None (occurrence: None)
  Receive Date: 20120711
  Receipt Date: 20120621
  Transmission Date: 20120928
  Serious: Yes (Hospitalization)
  Sender: FDA-Public Use
  Company Number: CA-JNJFOC-20111010274

PATIENT
  Sex: Male
  Weight: 85.5 kg

DRUGS (4)
  1. REMICADE [Suspect]
     Indication: CROHN'S DISEASE
     Route: 042
     Dates: start: 20110826
  2. PREDNISONE [Concomitant]
  3. ACETAMINOPHEN [Concomitant]
  4. HYDROCORTISONE [Concomitant]

REACTIONS (1)
  - RECTAL ABSCESS [None]
